FAERS Safety Report 6389500-5 (Version None)
Quarter: 2009Q4

REPORT INFORMATION
  Report Type: 
  Country: None (occurrence: None)
  Receive Date: 20091005
  Receipt Date: 20091005
  Transmission Date: 20100525
  Serious: Yes (Hospitalization)
  Sender: FDA-Public Use
  Company Number: None

PATIENT
  Sex: Male

DRUGS (3)
  1. DECITABINE DAY 1-5 EVERY 28 DAYS [Suspect]
     Indication: MYELODYSPLASTIC SYNDROME
     Dosage: 20MG/M2 IV
     Route: 042
  2. CYTARABINE [Suspect]
     Indication: MYELODYSPLASTIC SYNDROME
     Dosage: 20MG/M2 IV
     Route: 042
  3. NEUPOGEN [Suspect]
     Indication: MYELODYSPLASTIC SYNDROME
     Dosage: 5MG/KG SQ
     Route: 058

REACTIONS (2)
  - PANCYTOPENIA [None]
  - PNEUMONIA [None]
